FAERS Safety Report 5868094-4 (Version None)
Quarter: 2008Q3

REPORT INFORMATION
  Report Type: 
  Country: None (occurrence: None)
  Receive Date: 20080902
  Receipt Date: 20080410
  Transmission Date: 20090109
  Serious: No
  Sender: FDA-Public Use
  Company Number: US-ABBOTT-08P-163-0446855-00

PATIENT
  Age: 59 Year
  Sex: Female

DRUGS (1)
  1. DEPAKOTE ER [Suspect]
     Indication: PSYCHOTIC DISORDER

REACTIONS (1)
  - BLOOD THYROID STIMULATING HORMONE DECREASED [None]
